FAERS Safety Report 12523186 (Version 1)
Quarter: 2016Q3

REPORT INFORMATION
  Report Type: Report from Study
  Country: US (occurrence: US)
  Receive Date: 20160702
  Receipt Date: 20160702
  Transmission Date: 20161109
  Serious: No
  Sender: FDA-Public Use
  Company Number: PHEH2016US015893

PATIENT
  Age: 65 Year
  Sex: Female

DRUGS (1)
  1. COSENTYX [Suspect]
     Active Substance: SECUKINUMAB
     Indication: PSORIATIC ARTHROPATHY
     Dosage: 150 MG, QMO (EVERY 4 WEEKS)
     Route: 058

REACTIONS (4)
  - Urinary tract infection [Recovering/Resolving]
  - Nasal congestion [Unknown]
  - Dyspnoea [Unknown]
  - Ear infection [Recovering/Resolving]

NARRATIVE: CASE EVENT DATE: 20160603
